FAERS Safety Report 9967287 (Version 2)
Quarter: 2014Q1

REPORT INFORMATION
  Report Type: Report from Study
  Country: US (occurrence: US)
  Receive Date: 20140305
  Receipt Date: 20140305
  Transmission Date: 20141002
  Serious: Yes (Other)
  Sender: FDA-Public Use
  Company Number: US-ABBVIE-13P-163-1121411-00

PATIENT
  Age: 33 Year
  Sex: Male
  Weight: 83.99 kg

DRUGS (3)
  1. HUMIRA [Suspect]
     Indication: PSORIASIS
     Route: 058
     Dates: start: 20111202, end: 20130124
  2. SERTRALINE [Concomitant]
     Indication: ANTIDEPRESSANT THERAPY
     Route: 048
  3. STELARA [Concomitant]
     Indication: PSORIASIS
     Route: 058
     Dates: start: 20130130

REACTIONS (2)
  - Appendicitis [Recovered/Resolved]
  - Drug ineffective [Not Recovered/Not Resolved]
